FAERS Safety Report 6344582-1 (Version None)
Quarter: 2009Q3

REPORT INFORMATION
  Report Type: 
  Country: None (occurrence: None)
  Receive Date: 20090908
  Receipt Date: 20090827
  Transmission Date: 20100115
  Serious: Yes (Other)
  Sender: FDA-Public Use
  Company Number: US-JNJCH-2009023674

PATIENT
  Age: 18 Year
  Sex: Female
  Weight: 49.9 kg

DRUGS (1)
  1. LISTERINE TOTAL CARE ANTICAVITY MOUTHWASH [Suspect]
     Indication: DENTAL DISORDER PROPHYLAXIS
     Dosage: TEXT:TWICE DAILY AS DIRECTED
     Route: 048
     Dates: start: 20090808, end: 20090826

REACTIONS (1)
  - CAUSTIC INJURY [None]
